FAERS Safety Report 9136820 (Version 4)
Quarter: 2013Q2

REPORT INFORMATION
  Report Type: Spontaneous
  Country: BR (occurrence: BR)
  Receive Date: 20130304
  Receipt Date: 20130513
  Transmission Date: 20140414
  Serious: Yes (Other)
  Sender: FDA-Public Use
  Company Number: PHHY2013BR020570

PATIENT
  Sex: Female

DRUGS (2)
  1. MIACALCIC [Suspect]
     Indication: BONE PAIN
     Dosage: 200 IU, UNK
  2. MIACALCIC [Suspect]
     Indication: PELVIC FRACTURE
     Dosage: 200 IU, UNK
     Dates: start: 201212

REACTIONS (4)
  - Osteoporosis [Unknown]
  - Pelvic fracture [Unknown]
  - Asthenia [Unknown]
  - Bone pain [Unknown]
